FAERS Safety Report 10759903 (Version 2)
Quarter: 2015Q1

REPORT INFORMATION
  Report Type: Spontaneous
  Country: IL (occurrence: IL)
  Receive Date: 20150203
  Receipt Date: 20150327
  Transmission Date: 20150721
  Serious: Yes (Hospitalization)
  Sender: FDA-Public Use
  Company Number: PHHY2015IL012667

PATIENT
  Age: 66 Year
  Sex: Male

DRUGS (1)
  1. EXFORGE [Suspect]
     Active Substance: AMLODIPINE BESYLATE\VALSARTAN
     Indication: PRODUCT USED FOR UNKNOWN INDICATION
     Dosage: 1 DF, (160 MG VALS AND 10 MG AMLO)
     Route: 065

REACTIONS (3)
  - Drug ineffective [Recovered/Resolved]
  - Fall [Recovered/Resolved]
  - Blood pressure systolic increased [Recovered/Resolved]
